FAERS Safety Report 25037575 (Version 1)
Quarter: 2025Q1

REPORT INFORMATION
  Report Type: Spontaneous
  Country: CN (occurrence: CN)
  Receive Date: 20250304
  Receipt Date: 20250304
  Transmission Date: 20250409
  Serious: Yes (Other)
  Sender: BEIGENE
  Company Number: CN-BEIGENE-BGN-2025-003037

PATIENT
  Age: 46 Year
  Weight: 68 kg

DRUGS (6)
  1. TISLELIZUMAB [Suspect]
     Active Substance: TISLELIZUMAB
     Indication: Hepatic cancer
  2. TISLELIZUMAB [Suspect]
     Active Substance: TISLELIZUMAB
     Route: 041
  3. TISLELIZUMAB [Suspect]
     Active Substance: TISLELIZUMAB
     Route: 041
  4. TISLELIZUMAB [Suspect]
     Active Substance: TISLELIZUMAB
  5. DONAFENIB [Suspect]
     Active Substance: DONAFENIB
     Indication: Hepatic cancer
     Dosage: 0.2 GRAM, BID
     Route: 048
  6. DONAFENIB [Suspect]
     Active Substance: DONAFENIB
     Dosage: 0.2 GRAM, BID

REACTIONS (1)
  - Myelosuppression [Unknown]
